FAERS Safety Report 12625054 (Version 1)
Quarter: 2016Q3

REPORT INFORMATION
  Report Type: Spontaneous
  Country: None (occurrence: None)
  Receive Date: 20160804
  Receipt Date: 20160804
  Transmission Date: 20161109
  Serious: No
  Sender: FDA-Public Use
  Company Number: None

PATIENT

DRUGS (1)
  1. PROTAMINE [Suspect]
     Active Substance: PROTAMINE

REACTIONS (3)
  - Wrong drug administered [None]
  - Drug prescribing error [None]
  - Therapy change [None]
